FAERS Safety Report 9717522 (Version 1)
Quarter: 2013Q4

REPORT INFORMATION
  Report Type: Spontaneous
  Country: US (occurrence: US)
  Receive Date: 20131127
  Receipt Date: 20131127
  Transmission Date: 20140711
  Serious: No
  Sender: FDA-Public Use
  Company Number: US-GILEAD-2009-0020500

PATIENT
  Age: 78 Year
  Sex: Female

DRUGS (9)
  1. LETAIRIS [Suspect]
     Indication: PULMONARY ARTERIAL HYPERTENSION
     Route: 048
     Dates: start: 20090127
  2. LETAIRIS [Suspect]
     Indication: COR PULMONALE CHRONIC
  3. COUMADIN [Concomitant]
  4. TOPROL XL [Concomitant]
  5. CARDIZEM [Concomitant]
  6. ZOCOR [Concomitant]
  7. XYZAL [Concomitant]
  8. LEVOXYL [Concomitant]
  9. ZEGERID [Concomitant]

REACTIONS (1)
  - Oedema peripheral [Unknown]
